FAERS Safety Report 13437060 (Version 2)
Quarter: 2017Q2

REPORT INFORMATION
  Report Type: Spontaneous
  Country: US (occurrence: US)
  Receive Date: 20170413
  Receipt Date: 20170413
  Transmission Date: 20170830
  Serious: Yes (Other)
  Sender: FDA-Public Use
  Company Number: US-SA-2016SA088089

PATIENT
  Age: 58 Year
  Sex: Male

DRUGS (1)
  1. ALLEGRA-D [Suspect]
     Active Substance: FEXOFENADINE\PSEUDOEPHEDRINE
     Indication: NASAL CONGESTION
     Dosage: STARTED A COUPLE OF DAYS AGO?DOSE AND DAILY DOSE: 180MG/240MG
     Route: 048

REACTIONS (2)
  - Drug ineffective [Unknown]
  - Unevaluable event [Unknown]
